FAERS Safety Report 6035746-5 (Version None)
Quarter: 2009Q1

REPORT INFORMATION
  Report Type: 
  Country: None (occurrence: None)
  Receive Date: 20090113
  Receipt Date: 20090108
  Transmission Date: 20090719
  Serious: Yes (Other)
  Sender: FDA-Public Use
  Company Number: US-PFIZER INC-2008065774

PATIENT
  Sex: Female
  Weight: 45.4 kg

DRUGS (1)
  1. XALATAN [Suspect]
     Indication: GLAUCOMA
     Dosage: QHS
     Dates: start: 20060101

REACTIONS (3)
  - BLADDER DISORDER [None]
  - EYE DISORDER [None]
  - WEIGHT DECREASED [None]
